FAERS Safety Report 13414512 (Version 2)
Quarter: 2017Q2

REPORT INFORMATION
  Report Type: Report from Study
  Country: JP (occurrence: JP)
  Receive Date: 20170407
  Receipt Date: 20170606
  Transmission Date: 20170830
  Serious: No
  Sender: FDA-Public Use
  Company Number: JP-ACTELION-A-CH2017-151958

PATIENT
  Age: 79 Year
  Sex: Female

DRUGS (14)
  1. OPSUMIT [Suspect]
     Active Substance: MACITENTAN
     Indication: PULMONARY ARTERIAL HYPERTENSION
     Dosage: 10 MG, OD
     Route: 048
     Dates: start: 20161115
  2. ELIQUIS [Concomitant]
     Active Substance: APIXABAN
  3. TRAMCET [Concomitant]
     Active Substance: ACETAMINOPHEN\TRAMADOL
  4. CYMBALTA [Concomitant]
     Active Substance: DULOXETINE HYDROCHLORIDE
  5. SPIRONOLACTONE. [Concomitant]
     Active Substance: SPIRONOLACTONE
  6. LYRICA [Concomitant]
     Active Substance: PREGABALIN
  7. CALFINA [Concomitant]
     Active Substance: ALFACALCIDOL
  8. FEBURIC [Concomitant]
     Active Substance: FEBUXOSTAT
  9. ADCIRCA [Concomitant]
     Active Substance: TADALAFIL
  10. OXYGEN. [Concomitant]
     Active Substance: OXYGEN
  11. MAGNESIUM OXIDE. [Concomitant]
     Active Substance: MAGNESIUM OXIDE
  12. BELSOMRA [Concomitant]
     Active Substance: SUVOREXANT
  13. FUROSEMIDE. [Concomitant]
     Active Substance: FUROSEMIDE
  14. BERAPROST [Concomitant]
     Active Substance: BERAPROST

REACTIONS (3)
  - Cholangitis acute [Recovering/Resolving]
  - Alanine aminotransferase increased [Recovering/Resolving]
  - Aspartate aminotransferase increased [Recovering/Resolving]

NARRATIVE: CASE EVENT DATE: 20161218
